FAERS Safety Report 23371328 (Version 6)
Quarter: 2024Q4

REPORT INFORMATION
  Report Type: Spontaneous
  Country: US (occurrence: US)
  Receive Date: 20240105
  Receipt Date: 20241126
  Transmission Date: 20250114
  Serious: Yes (Other)
  Sender: PFIZER
  Company Number: US-PFIZER INC-PV202400000992

PATIENT
  Age: 75 Year
  Sex: Female
  Weight: 89.27 kg

DRUGS (4)
  1. VYNDAMAX [Suspect]
     Active Substance: TAFAMIDIS
     Indication: Amyloidosis
     Dosage: 61MG EVERY DAY AND 12^CLOCK
     Route: 048
  2. VYNDAMAX [Suspect]
     Active Substance: TAFAMIDIS
     Indication: Acquired ATTR amyloidosis
  3. VYNDAMAX [Suspect]
     Active Substance: TAFAMIDIS
     Indication: Pericardial effusion
  4. RINVOQ [Concomitant]
     Active Substance: UPADACITINIB
     Indication: Crohn^s disease
     Dosage: 30 MG TABLET EVERY DAY AT 1:30
     Route: 048

REACTIONS (7)
  - Knee operation [Unknown]
  - Knee arthroplasty [Unknown]
  - Influenza [Recovered/Resolved]
  - Depressed mood [Unknown]
  - Dyspnoea [Unknown]
  - Hypoaesthesia [Unknown]
  - Arthritis [Unknown]
